FAERS Safety Report 4442893-8 (Version None)
Quarter: 2004Q3

REPORT INFORMATION
  Report Type: 
  Country: None (occurrence: None)
  Receive Date: 20040907
  Receipt Date: 20040907
  Transmission Date: 20050211
  Serious: No
  Sender: FDA-Public Use
  Company Number: None

PATIENT
  Age: 47 Year
  Sex: Male

DRUGS (1)
  1. SOTALOL (GENERIC) [Suspect]
     Indication: ARRHYTHMIA
     Dates: start: 20030901

REACTIONS (4)
  - CHEST DISCOMFORT [None]
  - ISCHAEMIA [None]
  - PACEMAKER COMPLICATION [None]
  - PHARMACEUTICAL PRODUCT COMPLAINT [None]
